FAERS Safety Report 22182806 (Version 1)
Quarter: 2023Q2

REPORT INFORMATION
  Report Type: Spontaneous
  Country: US (occurrence: None)
  Receive Date: 20230406
  Receipt Date: 20230406
  Transmission Date: 20230721
  Serious: Yes (Other)
  Sender: FDA-Public Use
  Company Number: None

PATIENT

DRUGS (1)
  1. PRALUENT [Suspect]
     Active Substance: ALIROCUMAB

REACTIONS (6)
  - Myalgia [None]
  - Injection related reaction [None]
  - Mobility decreased [None]
  - Gait disturbance [None]
  - Pain [None]
  - COVID-19 [None]

NARRATIVE: CASE EVENT DATE: 20230322
